FAERS Safety Report 16717406 (Version 6)
Quarter: 2022Q3

REPORT INFORMATION
  Report Type: Spontaneous
  Country: FR (occurrence: FR)
  Receive Date: 20190819
  Receipt Date: 20220624
  Transmission Date: 20221027
  Serious: Yes (Death, Hospitalization, Other)
  Sender: FDA-Public Use
  Company Number: PHHY2019FR192746

PATIENT
  Age: 58 Year
  Sex: Male
  Weight: 106 kg

DRUGS (7)
  1. BISOPROLOL [Interacting]
     Active Substance: BISOPROLOL
     Indication: Product used for unknown indication
     Dosage: UNK
     Route: 065
  2. AMLODIPINE BESYLATE [Interacting]
     Active Substance: AMLODIPINE BESYLATE
     Indication: Product used for unknown indication
     Dosage: 5 MG, UNKNOWN
     Route: 048
  3. RAMIPRIL [Interacting]
     Active Substance: RAMIPRIL
     Indication: Product used for unknown indication
     Dosage: UNK
     Route: 048
  4. ATORVASTATIN [Interacting]
     Active Substance: ATORVASTATIN
     Indication: Product used for unknown indication
     Dosage: UNK
     Route: 048
  5. EPLERENONE [Interacting]
     Active Substance: EPLERENONE
     Indication: Product used for unknown indication
     Dosage: UNK
     Route: 048
  6. APIXABAN [Interacting]
     Active Substance: APIXABAN
     Indication: Atrial fibrillation
     Dosage: UNK
     Route: 048
  7. APIXABAN [Interacting]
     Active Substance: APIXABAN
     Indication: Anticoagulant therapy

REACTIONS (7)
  - Cardiogenic shock [Fatal]
  - Acute kidney injury [Fatal]
  - Suicide attempt [Fatal]
  - Toxicity to various agents [Fatal]
  - Intentional overdose [Fatal]
  - Intentional product misuse [Fatal]
  - Drug interaction [Unknown]
